APPROVED DRUG PRODUCT: NAPROXEN SODIUM AND DIPHENHYDRAMINE HYDROCHLORIDE
Active Ingredient: DIPHENHYDRAMINE HYDROCHLORIDE; NAPROXEN SODIUM
Strength: 25MG;220MG
Dosage Form/Route: TABLET;ORAL
Application: A211830 | Product #001
Applicant: COREPHARMA LLC
Approved: Aug 22, 2019 | RLD: No | RS: No | Type: OTC